FAERS Safety Report 25331206 (Version 1)
Quarter: 2025Q2

REPORT INFORMATION
  Report Type: Spontaneous
  Country: US (occurrence: US)
  Receive Date: 20250519
  Receipt Date: 20250519
  Transmission Date: 20250717
  Serious: No
  Sender: PFIZER
  Company Number: US-PFIZER INC-PV202500058743

PATIENT
  Age: 56 Year
  Sex: Male
  Weight: 122.4 kg

DRUGS (5)
  1. MORPHINE SULFATE [Suspect]
     Active Substance: MORPHINE SULFATE
     Indication: Pain
     Dates: start: 202503
  2. MORPHINE SULFATE [Suspect]
     Active Substance: MORPHINE SULFATE
     Dates: start: 202504
  3. VIVITROL [Suspect]
     Active Substance: NALTREXONE
     Indication: Alcoholism
     Dosage: 380 MG, MONTHLY
     Route: 030
     Dates: start: 2021
  4. VIVITROL [Suspect]
     Active Substance: NALTREXONE
     Dosage: 380 MG, MONTHLY
     Route: 030
     Dates: start: 202503
  5. TYLENOL [Suspect]
     Active Substance: ACETAMINOPHEN
     Indication: Pain
     Dates: start: 202504

REACTIONS (1)
  - Inadequate analgesia [Unknown]
